FAERS Safety Report 9903233 (Version 1)
Quarter: 2014Q1

REPORT INFORMATION
  Report Type: Spontaneous
  Country: US (occurrence: US)
  Receive Date: 20140217
  Receipt Date: 20140217
  Transmission Date: 20141002
  Serious: No
  Sender: FDA-Public Use
  Company Number: US-ASTRAZENECA-2013SE74674

PATIENT
  Age: 73 Year
  Sex: Female
  Weight: 68.9 kg

DRUGS (7)
  1. TENORMIN [Suspect]
     Indication: BLOOD PRESSURE ABNORMAL
     Dosage: ATENOLOL BY MYLIN
     Route: 048
  2. TENORMIN [Suspect]
     Indication: BLOOD PRESSURE ABNORMAL
     Dosage: ATENOLOL BY TEVA
     Route: 048
  3. TENORMIN [Suspect]
     Indication: BLOOD PRESSURE ABNORMAL
     Route: 048
  4. TENORMIN [Suspect]
     Indication: BLOOD PRESSURE ABNORMAL
     Dosage: ATENOLOL BY TEVA
     Route: 048
  5. NORVASC [Concomitant]
     Route: 048
  6. DIRUETIC, UNSPECIFIED [Concomitant]
     Route: 048
  7. K DUR [Concomitant]
     Route: 048

REACTIONS (1)
  - Palpitations [Unknown]
